FAERS Safety Report 7433891-0 (Version None)
Quarter: 2011Q2

REPORT INFORMATION
  Report Type: 
  Country: None (occurrence: None)
  Receive Date: 20110420
  Receipt Date: 20110420
  Transmission Date: 20111010
  Serious: Yes (Hospitalization)
  Sender: FDA-Public Use
  Company Number: None

PATIENT
  Age: 61 Year
  Sex: Female
  Weight: 130 kg

DRUGS (1)
  1. ALTOPREV [Suspect]
     Indication: DYSLIPIDAEMIA
     Dosage: 1 DAILY PO YEAR+
     Route: 048

REACTIONS (3)
  - RENAL FAILURE ACUTE [None]
  - DRUG CLEARANCE DECREASED [None]
  - MYOSITIS [None]
